FAERS Safety Report 7010140-9 (Version None)
Quarter: 2010Q3

REPORT INFORMATION
  Report Type: 
  Country: None (occurrence: None)
  Receive Date: 20100923
  Receipt Date: 20100913
  Transmission Date: 20110219
  Serious: Yes (Other)
  Sender: FDA-Public Use
  Company Number: US-PFIZER INC-2010116233

PATIENT
  Sex: Female
  Weight: 70.295 kg

DRUGS (7)
  1. NEURONTIN [Suspect]
     Indication: MIGRAINE
     Dosage: 600 MG, 3X/DAY
     Route: 048
     Dates: start: 20090401, end: 20100801
  2. LISINOPRIL [Concomitant]
     Indication: HYPERTENSION
     Dosage: UNK
  3. CELEXA [Concomitant]
     Indication: DEPRESSION
     Dosage: UNK
  4. PROMETHAZINE [Concomitant]
     Indication: ABDOMINAL DISCOMFORT
     Dosage: UNK, AS NEEDED
  5. PROMETHAZINE [Concomitant]
     Indication: VOMITING
  6. TOPAMAX [Concomitant]
     Dosage: UNK
  7. CLONAZEPAM [Concomitant]
     Dosage: UNK

REACTIONS (2)
  - WEIGHT DECREASED [None]
  - WITHDRAWAL SYNDROME [None]
